FAERS Safety Report 21768878 (Version 1)
Quarter: 2022Q4

REPORT INFORMATION
  Report Type: Spontaneous
  Country: US (occurrence: US)
  Receive Date: 20221222
  Receipt Date: 20221222
  Transmission Date: 20230113
  Serious: No
  Sender: FDA-Public Use
  Company Number: US-JNJFOC-20221239677

PATIENT
  Sex: Female

DRUGS (1)
  1. SPRAVATO [Suspect]
     Active Substance: ESKETAMINE
     Indication: Product used for unknown indication
     Dosage: LAST APPLICATION ON 06-DEC-2022
     Route: 065

REACTIONS (7)
  - Product dose omission issue [Unknown]
  - Anhedonia [Unknown]
  - Staring [Unknown]
  - Apathy [Unknown]
  - Anxiety [Unknown]
  - Emotional distress [Unknown]
  - Memory impairment [Unknown]
